FAERS Safety Report 6549803-8 (Version None)
Quarter: 2010Q1

REPORT INFORMATION
  Report Type: 
  Country: None (occurrence: None)
  Receive Date: 20100125
  Receipt Date: 20100118
  Transmission Date: 20100710
  Serious: Yes (Death, Hospitalization)
  Sender: FDA-Public Use
  Company Number: FR-CELGENEUS-056-20484-10011114

PATIENT
  Age: 84 Year
  Sex: Female

DRUGS (11)
  1. INNOHEP [Suspect]
     Indication: PULMONARY EMBOLISM
     Route: 058
     Dates: start: 20091101, end: 20091206
  2. INNOHEP [Suspect]
     Indication: VENOUS THROMBOSIS
  3. HUMIRA [Suspect]
     Indication: DRUG USE FOR UNKNOWN INDICATION
     Route: 058
     Dates: start: 20081001, end: 20091101
  4. METOJECT [Suspect]
     Indication: DRUG USE FOR UNKNOWN INDICATION
     Route: 058
     Dates: start: 20061001, end: 20091101
  5. CORTANCYL [Suspect]
     Indication: DRUG USE FOR UNKNOWN INDICATION
     Route: 048
     Dates: start: 20061001, end: 20091206
  6. PROTELOS [Suspect]
     Indication: DRUG USE FOR UNKNOWN INDICATION
     Route: 048
     Dates: end: 20091115
  7. CALCIUM ACETATE [Suspect]
     Indication: DRUG USE FOR UNKNOWN INDICATION
     Route: 048
     Dates: end: 20091206
  8. VITAMIN D3 [Suspect]
     Indication: DRUG USE FOR UNKNOWN INDICATION
     Route: 048
     Dates: end: 20091206
  9. TENORMIN [Suspect]
     Indication: DRUG USE FOR UNKNOWN INDICATION
     Route: 065
     Dates: end: 20091206
  10. KARDEGIC [Suspect]
     Indication: DRUG USE FOR UNKNOWN INDICATION
     Route: 048
     Dates: end: 20091206
  11. OGAST [Suspect]
     Indication: DRUG USE FOR UNKNOWN INDICATION
     Route: 048
     Dates: start: 20091101, end: 20091206

REACTIONS (1)
  - TUBERCULOSIS [None]
